FAERS Safety Report 12279134 (Version 1)
Quarter: 2016Q2

REPORT INFORMATION
  Report Type: Spontaneous
  Country: PL (occurrence: PL)
  Receive Date: 20160418
  Receipt Date: 20160418
  Transmission Date: 20160815
  Serious: Yes (Hospitalization, Other)
  Sender: FDA-Public Use
  Company Number: PHHY2016PL047578

PATIENT
  Age: 69 Year
  Sex: Female

DRUGS (1)
  1. SANDOSTATIN LAR DEPOT [Suspect]
     Active Substance: OCTREOTIDE ACETATE
     Indication: NEUROENDOCRINE TUMOUR
     Dosage: 30 MG, QMO (EVERY 28 DAYS)
     Route: 065

REACTIONS (26)
  - Dyspnoea [Unknown]
  - Erythema [Recovered/Resolved]
  - Mitral valve stenosis [Unknown]
  - Fatigue [Unknown]
  - Carcinoid heart disease [Unknown]
  - Small intestine carcinoma [Unknown]
  - Neoplasm [Unknown]
  - Pulmonary vascular disorder [Recovered/Resolved]
  - Malignant neoplasm progression [Unknown]
  - Cardiac disorder [Unknown]
  - Abdominal pain [Unknown]
  - 5-hydroxyindolacetic acid in urine increased [Recovering/Resolving]
  - Blood pressure increased [Unknown]
  - Blood chromogranin A increased [Recovering/Resolving]
  - Telangiectasia [Recovered/Resolved]
  - Endocrine neoplasm [Unknown]
  - Adenoma benign [Unknown]
  - Serum serotonin increased [Recovering/Resolving]
  - Metastases to liver [Unknown]
  - Pulmonary valve stenosis [Unknown]
  - Hepatic cyst [Unknown]
  - Mitral valve incompetence [Unknown]
  - Drug tolerance decreased [Unknown]
  - Pulmonary valve incompetence [Unknown]
  - Diarrhoea [Recovered/Resolved]
  - Cholelithiasis [Unknown]
